FAERS Safety Report 17553194 (Version 1)
Quarter: 2020Q1

REPORT INFORMATION
  Report Type: Spontaneous
  Country: US (occurrence: US)
  Receive Date: 20200317
  Receipt Date: 20200317
  Transmission Date: 20200409
  Serious: No
  Sender: FDA-Public Use
  Company Number: US-HISAMITSU-2019-US-016856

PATIENT
  Age: 80 Year
  Sex: Male
  Weight: 79.38 kg

DRUGS (2)
  1. LOSARTAN. [Concomitant]
     Active Substance: LOSARTAN
  2. SALONPAS PAIN RELIEF [Suspect]
     Active Substance: MENTHOL\METHYL SALICYLATE
     Indication: ANALGESIC THERAPY
     Dosage: ONE PATCH APPLIED TO LOW BACK X2
     Route: 061
     Dates: start: 20190903, end: 20190904

REACTIONS (1)
  - Drug ineffective [Unknown]

NARRATIVE: CASE EVENT DATE: 20190903
